FAERS Safety Report 6203821-8 (Version None)
Quarter: 2009Q2

REPORT INFORMATION
  Report Type: 
  Country: None (occurrence: None)
  Receive Date: 20090527
  Receipt Date: 20090527
  Transmission Date: 20091009
  Serious: Yes (Death, Hospitalization)
  Sender: FDA-Public Use
  Company Number: PHHO2005SE15965

PATIENT
  Sex: Male
  Weight: 76 kg

DRUGS (7)
  1. CIBADREX T29368+ [Suspect]
     Indication: HYPERTENSION
     Dosage: LEVEL 1
     Route: 048
     Dates: start: 20050404, end: 20050506
  2. CIBADREX T29368+ [Suspect]
     Dosage: LEVEL 2
     Route: 048
     Dates: start: 20050507, end: 20050608
  3. CIBADREX T29368+ [Suspect]
     Dosage: LEVEL 3
     Route: 048
     Dates: start: 20050609, end: 20050929
  4. TENORMIN [Concomitant]
     Indication: CARDIAC DISORDER
     Dosage: 25 MG, UNK
     Route: 048
     Dates: start: 20050526
  5. TROMBYL [Concomitant]
     Indication: THROMBOSIS PROPHYLAXIS
     Dosage: 160 MG, UNK
     Route: 048
     Dates: start: 19930214
  6. ATENOLOL [Concomitant]
  7. ALFADIL [Concomitant]
     Dosage: 4 ML
     Route: 048
     Dates: start: 20060822, end: 20070521

REACTIONS (11)
  - ANGINA UNSTABLE [None]
  - ARTERIOSCLEROSIS [None]
  - CAROTID ARTERY STENOSIS [None]
  - CEREBRAL INFARCTION [None]
  - CONCOMITANT DISEASE PROGRESSION [None]
  - MYOCARDIAL INFARCTION [None]
  - MYOCARDIAL ISCHAEMIA [None]
  - ORTHOSTATIC HYPOTENSION [None]
  - SEPSIS [None]
  - SEPTIC SHOCK [None]
  - SYNCOPE [None]
